FAERS Safety Report 12109049 (Version 1)
Quarter: 2016Q1

REPORT INFORMATION
  Report Type: Spontaneous
  Country: US (occurrence: None)
  Receive Date: 20160222
  Receipt Date: 20160222
  Transmission Date: 20160526
  Serious: Yes (Disabling, Other)
  Sender: FDA-Public Use
  Company Number: None

PATIENT
  Age: 46 Year
  Sex: Female
  Weight: 132.45 kg

DRUGS (17)
  1. MORPHINE [Concomitant]
     Active Substance: MORPHINE
  2. TRAZODONE [Concomitant]
     Active Substance: TRAZODONE HYDROCHLORIDE
  3. VITAMIN D3 [Concomitant]
     Active Substance: CHOLECALCIFEROL
  4. AUBAGIO [Suspect]
     Active Substance: TERIFLUNOMIDE
     Indication: RELAPSING-REMITTING MULTIPLE SCLEROSIS
     Dosage: 1 PILL ONCE DAILY TAKEN BY MOUTH
     Route: 048
     Dates: start: 20150706, end: 20151120
  5. LEVOTHYROXINE. [Concomitant]
     Active Substance: LEVOTHYROXINE
  6. BUMEX [Concomitant]
     Active Substance: BUMETANIDE
  7. ALLOPURINOL. [Concomitant]
     Active Substance: ALLOPURINOL
  8. PAXIL [Concomitant]
     Active Substance: PAROXETINE HYDROCHLORIDE
  9. PROBIOTICS [Concomitant]
     Active Substance: PROBIOTICS NOS
  10. FOLIC ACID. [Concomitant]
     Active Substance: FOLIC ACID
  11. VALUIM [Concomitant]
  12. RANITIDINE [Concomitant]
     Active Substance: RANITIDINE\RANITIDINE HYDROCHLORIDE
  13. WELLBUTRIN [Concomitant]
     Active Substance: BUPROPION HYDROCHLORIDE
  14. TIZANADINE [Concomitant]
  15. MODAFINIL. [Concomitant]
     Active Substance: MODAFINIL
  16. ZOLPIDEM [Concomitant]
     Active Substance: ZOLPIDEM\ZOLPIDEM TARTRATE
  17. B6 [Concomitant]
     Active Substance: PYRIDOXINE HYDROCHLORIDE

REACTIONS (13)
  - Alopecia [None]
  - Immune system disorder [None]
  - Chills [None]
  - White blood cell count increased [None]
  - Liver function test abnormal [None]
  - Drug withdrawal syndrome [None]
  - Ear infection [None]
  - Pharyngitis [None]
  - Fatigue [None]
  - Headache [None]
  - Sinusitis [None]
  - Urinary tract infection [None]
  - Dyspnoea [None]

NARRATIVE: CASE EVENT DATE: 20160219
